FAERS Safety Report 7072039-1 (Version None)
Quarter: 2010Q4

REPORT INFORMATION
  Report Type: 
  Country: None (occurrence: None)
  Receive Date: 20101029
  Receipt Date: 20101018
  Transmission Date: 20110411
  Serious: Yes (Disabling)
  Sender: FDA-Public Use
  Company Number: PHHY2010DK65027

PATIENT
  Sex: Female

DRUGS (7)
  1. EXELON [Suspect]
     Indication: DEMENTIA ALZHEIMER'S TYPE
     Dosage: 9.5 MG, QD
     Route: 062
     Dates: start: 20090320, end: 20100817
  2. MEMANTINE HCL [Concomitant]
     Dosage: 20 MG, UNK
  3. RISPERDAL [Concomitant]
     Dosage: 0.25 MG, BID
  4. CIPRALEX [Concomitant]
     Dosage: 20 MG, QD
  5. SEROQUEL [Concomitant]
     Indication: DEPRESSION
  6. SEROQUEL [Concomitant]
     Indication: HALLUCINATION
  7. SEROQUEL [Concomitant]
     Indication: ABNORMAL BEHAVIOUR

REACTIONS (1)
  - URINARY TRACT INFECTION [None]
